FAERS Safety Report 6826665-2 (Version None)
Quarter: 2010Q3

REPORT INFORMATION
  Report Type: 
  Country: None (occurrence: None)
  Receive Date: 20100709
  Receipt Date: 20100630
  Transmission Date: 20110219
  Serious: Yes (Other)
  Sender: FDA-Public Use
  Company Number: US-PFIZER INC-2010060151

PATIENT
  Sex: Female
  Weight: 59.9 kg

DRUGS (11)
  1. TIKOSYN [Suspect]
     Indication: ATRIAL FIBRILLATION
     Dosage: 125 UG, 2X/DAY
     Route: 048
     Dates: start: 20081001
  2. WELCHOL [Interacting]
     Indication: HYPERCHOLESTEROLAEMIA
     Dosage: 3.75 G WITH 4 OZ WATER
     Route: 048
     Dates: start: 20100317, end: 20100426
  3. COUMADIN [Concomitant]
  4. INDAPAMIDE [Concomitant]
  5. NEXIUM [Concomitant]
     Dosage: FREQUENCY: 2X/DAILY,
  6. MULTIVITAMIN [Concomitant]
  7. CALCIUM WITH VITAMIN D [Concomitant]
  8. PREDNISONE [Concomitant]
     Dosage: 5 MG, ALTERNATE DAY
  9. SYMBICORT [Concomitant]
  10. TOPROL-XL [Concomitant]
  11. VASOTEC [Concomitant]
     Dosage: FREQUENCY: 2X/DAY,

REACTIONS (4)
  - DRUG INTERACTION [None]
  - ELECTROCARDIOGRAM QT PROLONGED [None]
  - ELECTROCARDIOGRAM ST-T SEGMENT ABNORMAL [None]
  - VENTRICULAR EXTRASYSTOLES [None]
